FAERS Safety Report 9205421 (Version 1)
Quarter: 2013Q2

REPORT INFORMATION
  Report Type: Spontaneous
  Country: AU (occurrence: AU)
  Receive Date: 20130403
  Receipt Date: 20130403
  Transmission Date: 20140414
  Serious: Yes (Life-Threatening, Hospitalization, Other)
  Sender: FDA-Public Use
  Company Number: AU-BRISTOL-MYERS SQUIBB COMPANY-18711846

PATIENT
  Age: 72 Year
  Sex: Male
  Weight: 96 kg

DRUGS (10)
  1. WARFARIN SODIUM [Suspect]
     Indication: ATRIAL FIBRILLATION
     Route: 065
  2. ACETYLSALICYLIC ACID [Suspect]
     Indication: MYOCARDIAL ISCHAEMIA
     Dosage: UNK-23JAN12?23JAN12-ONG
     Route: 065
  3. CLOPIDOGREL BISULFATE [Suspect]
     Indication: MYOCARDIAL ISCHAEMIA
     Route: 065
  4. AZTREONAM [Concomitant]
     Indication: BRONCHIECTASIS
     Dosage: AZTREONAM LYSINE VAPOUR,LIQUID. THERAPY INTERRUPTED ON 15JAN12.
     Route: 055
     Dates: start: 20111223
  5. SPIRIVA [Concomitant]
  6. SERETIDE [Concomitant]
  7. VENTOLINE [Concomitant]
  8. ATORVASTATIN [Concomitant]
  9. DILTIAZEM HCL [Concomitant]
  10. CANDESARTAN [Concomitant]

REACTIONS (3)
  - Haemorrhage intracranial [Recovered/Resolved with Sequelae]
  - Infective exacerbation of bronchiectasis [Recovered/Resolved]
  - Haemorrhoidal haemorrhage [Unknown]
